FAERS Safety Report 12349710 (Version 2)
Quarter: 2016Q2

REPORT INFORMATION
  Report Type: Report from Study
  Country: GB (occurrence: GB)
  Receive Date: 20160510
  Receipt Date: 20160518
  Transmission Date: 20160815
  Serious: Yes (Hospitalization)
  Sender: FDA-Public Use
  Company Number: GB-LEO PHARMA-241121

PATIENT
  Age: 76 Year
  Sex: Female

DRUGS (1)
  1. PICATO [Suspect]
     Active Substance: INGENOL MEBUTATE
     Indication: ACTINIC KERATOSIS
     Route: 061
     Dates: start: 20160331

REACTIONS (5)
  - Pneumonia [Recovering/Resolving]
  - Pain [Not Recovered/Not Resolved]
  - Application site erythema [Recovered/Resolved]
  - Drug administered at inappropriate site [Unknown]
  - Respiration abnormal [Not Recovered/Not Resolved]

NARRATIVE: CASE EVENT DATE: 20160331
